FAERS Safety Report 13701435 (Version 1)
Quarter: 2017Q2

REPORT INFORMATION
  Report Type: Spontaneous
  Country: US (occurrence: US)
  Receive Date: 20170628
  Receipt Date: 20170628
  Transmission Date: 20170830
  Serious: Yes (Life-Threatening, Hospitalization, Other)
  Sender: FDA-Public Use
  Company Number: None

PATIENT
  Age: 64 Year
  Sex: Female
  Weight: 83.9 kg

DRUGS (1)
  1. RITUXIMAB [Suspect]
     Active Substance: RITUXIMAB
     Indication: THROMBOTIC THROMBOCYTOPENIC PURPURA
     Dosage: OTHER DOSE:MG/MG;OTHER FREQUENCY:ONCE, EVERY OTHER;?
     Route: 042

REACTIONS (7)
  - Transfusion reaction [None]
  - Mental status changes [None]
  - Pyrexia [None]
  - Infarction [None]
  - Bronchial disorder [None]
  - Communication disorder [None]
  - Chills [None]

NARRATIVE: CASE EVENT DATE: 20170623
